FAERS Safety Report 14116626 (Version 17)
Quarter: 2018Q2

REPORT INFORMATION
  Report Type: Spontaneous
  Country: US (occurrence: US)
  Receive Date: 20171023
  Receipt Date: 20180629
  Transmission Date: 20180711
  Serious: Yes (Hospitalization)
  Sender: FDA-Public Use
  Company Number: US-ACTELION-A-US2017-161157

PATIENT
  Age: 26 Year
  Sex: Female
  Weight: 62.13 kg

DRUGS (3)
  1. OPSUMIT [Suspect]
     Active Substance: MACITENTAN
     Indication: PULMONARY HYPERTENSION
     Dosage: 10 MG, QD
     Route: 048
  2. ADCIRCA [Concomitant]
     Active Substance: TADALAFIL
     Dosage: 40 MG, QD
  3. VELETRI [Suspect]
     Active Substance: EPOPROSTENOL
     Indication: PULMONARY HYPERTENSION
     Dosage: 17 NG/KG, PER MIN
     Route: 042

REACTIONS (24)
  - Dizziness [Not Recovered/Not Resolved]
  - Dyspnoea exertional [Unknown]
  - Fatigue [Unknown]
  - Dyspnoea at rest [Unknown]
  - Back pain [Unknown]
  - Pneumonia [Unknown]
  - Diarrhoea [Unknown]
  - Anxiety [Recovering/Resolving]
  - Neck pain [Unknown]
  - Angina pectoris [Unknown]
  - Pyrexia [Unknown]
  - Device alarm issue [Unknown]
  - Catheter site pruritus [Unknown]
  - Dyspnoea [Unknown]
  - Chest pain [Unknown]
  - Catheter site erythema [Unknown]
  - Depression [Recovering/Resolving]
  - Catheter site discharge [Unknown]
  - Vomiting [Unknown]
  - Device related sepsis [Unknown]
  - Pain in jaw [Unknown]
  - Pulmonary pain [Unknown]
  - Palpitations [Unknown]
  - Syncope [Unknown]

NARRATIVE: CASE EVENT DATE: 201711
